FAERS Safety Report 5551272-1 (Version None)
Quarter: 2007Q4

REPORT INFORMATION
  Report Type: 
  Country: None (occurrence: None)
  Receive Date: 20071128
  Receipt Date: 20061004
  Transmission Date: 20080405
  Serious: Yes (Other)
  Sender: FDA-Public Use
  Company Number: 2006121706

PATIENT
  Age: 55 Year
  Sex: Male
  Weight: 117.028 kg

DRUGS (4)
  1. LIPITOR [Suspect]
     Indication: BLOOD CHOLESTEROL INCREASED
     Dosage: 80 MG (80 MG,1 IN 1 D)
     Dates: start: 19990101
  2. CHLORTHALIDONE [Concomitant]
  3. PLAVIX [Concomitant]
  4. ALTACE [Concomitant]

REACTIONS (2)
  - AMNESIA [None]
  - HYPERTENSION [None]
